FAERS Safety Report 7557397-3 (Version None)
Quarter: 2011Q2

REPORT INFORMATION
  Report Type: 
  Country: None (occurrence: None)
  Receive Date: 20110620
  Receipt Date: 20110609
  Transmission Date: 20111010
  Serious: Yes (Hospitalization)
  Sender: FDA-Public Use
  Company Number: US-ROCHE-782489

PATIENT
  Age: 55 Year
  Sex: Female
  Weight: 51.8 kg

DRUGS (6)
  1. BLINDED BEVACIZUMAB [Suspect]
     Dosage: CYCLE 5-8, LAST DOSE PRIOR TO SAE: 20 SEP 2010
     Route: 042
  2. PEG-FILGRASTIM [Concomitant]
     Dosage: 6MG SQ ON DAY 2, LAST DOSE PRIOR TO SAE: 09 SEP 2010
     Route: 058
     Dates: start: 20100726
  3. DOXORUBICIN HCL [Suspect]
     Indication: BREAST CANCER
     Dosage: IV OVER 20-30 MIN ON DAY 1,LAST DOSE PRIOR TO SAE: 07 SEP 2010
     Route: 042
     Dates: start: 20100726
  4. BLINDED BEVACIZUMAB [Suspect]
     Indication: BREAST CANCER
     Dosage: IV OVER 30- 90 MIN ON DAY 1, CYCLE = 14 DAYS  (CYCLES 1-4), DOSE BLINDED
     Route: 042
     Dates: start: 20100726
  5. CYCLOPHOSPHAMIDE [Suspect]
     Indication: BREAST CANCER
     Dosage: IV OVER 20-30 MIN ON DAY 1, LAST DOSE PRIOR TO SAE: 07 SEP 2010
     Route: 042
     Dates: start: 20100726
  6. PACLITAXEL [Suspect]
     Indication: BREAST CANCER
     Dosage: CYCLE = 21 DAYS  (CYCLES 5-8) IV OVER 1 HR ON DAYS 1, 8 AND 15, LAST DOSE PRIOR TO SAE: 27 SEP 2010
     Route: 042
     Dates: start: 20100726

REACTIONS (1)
  - DEPRESSION [None]
